FAERS Safety Report 4853071-2 (Version None)
Quarter: 2005Q4

REPORT INFORMATION
  Report Type: 
  Country: None (occurrence: None)
  Receive Date: 20051212
  Receipt Date: 20051121
  Transmission Date: 20060501
  Serious: Yes (Other)
  Sender: FDA-Public Use
  Company Number: 425426

PATIENT
  Age: 23 Year
  Sex: Male

DRUGS (3)
  1. DIAZEPAM [Suspect]
     Dosage: 15 MG  1 PER ONE DOSE ORAL
     Route: 048
  2. AMITRIPTYLINE HYDROCHLORIDE (AMITRIPYTLINE) 25 MG [Suspect]
     Dosage: 4 DOSE FORM E DAILY  ORAL
     Route: 048
  3. ETHANOL (ALCOHOL) [Suspect]
     Dosage: ORAL
     Route: 048

REACTIONS (8)
  - ABNORMAL BEHAVIOUR [None]
  - AGGRESSION [None]
  - AMNESIA [None]
  - DELIRIUM [None]
  - DISSOCIATIVE FUGUE [None]
  - DRUG TOXICITY [None]
  - LOSS OF CONSCIOUSNESS [None]
  - PARADOXICAL DRUG REACTION [None]
